FAERS Safety Report 7365443-5 (Version None)
Quarter: 2011Q1

REPORT INFORMATION
  Report Type: 
  Country: None (occurrence: None)
  Receive Date: 20110304
  Receipt Date: 20110304
  Transmission Date: 20110831
  Serious: Yes (Hospitalization)
  Sender: FDA-Public Use
  Company Number: None

PATIENT
  Age: 59 Year
  Sex: Male
  Weight: 87.3 kg

DRUGS (7)
  1. ARMODAFINIL [Suspect]
     Dosage: 50MG #TABS QD IN AM PO
     Route: 048
     Dates: start: 20101122
  2. LOTREL [Concomitant]
  3. LORTAB [Concomitant]
  4. MICARDIS [Concomitant]
  5. KEPPRA [Concomitant]
  6. SYNTHROID [Concomitant]
  7. DECADRON [Concomitant]

REACTIONS (3)
  - FATIGUE [None]
  - HEADACHE [None]
  - CONVULSION [None]
